FAERS Safety Report 6986807-5 (Version None)
Quarter: 2010Q3

REPORT INFORMATION
  Report Type: 
  Country: None (occurrence: None)
  Receive Date: 20100915
  Receipt Date: 20090805
  Transmission Date: 20110219
  Serious: No
  Sender: FDA-Public Use
  Company Number: US-WYE-H10476009

PATIENT
  Sex: Female

DRUGS (1)
  1. PRISTIQ [Suspect]
     Route: 048
     Dates: start: 20090804

REACTIONS (6)
  - COORDINATION ABNORMAL [None]
  - DIZZINESS [None]
  - DRY MOUTH [None]
  - THROAT IRRITATION [None]
  - TREMOR [None]
  - URTICARIA [None]
